FAERS Safety Report 7473144-8 (Version None)
Quarter: 2011Q2

REPORT INFORMATION
  Report Type: 
  Country: None (occurrence: None)
  Receive Date: 20110511
  Receipt Date: 20110506
  Transmission Date: 20111010
  Serious: Yes (Death, Hospitalization, Other)
  Sender: FDA-Public Use
  Company Number: PHHY2011PL38134

PATIENT
  Age: 2 Year
  Sex: Female

DRUGS (1)
  1. VALPROIC ACID [Suspect]
     Indication: EPILEPSY
     Dosage: UNK UKN, UNK

REACTIONS (7)
  - TOXICITY TO VARIOUS AGENTS [None]
  - EPILEPSY [None]
  - HEPATIC FAILURE [None]
  - ALPERS' DISEASE [None]
  - GENE MUTATION [None]
  - VOMITING [None]
  - ELECTROENCEPHALOGRAM ABNORMAL [None]
